FAERS Safety Report 5764016-5 (Version None)
Quarter: 2008Q2

REPORT INFORMATION
  Report Type: 
  Country: None (occurrence: None)
  Receive Date: 20080609
  Receipt Date: 20080222
  Transmission Date: 20081010
  Serious: No
  Sender: FDA-Public Use
  Company Number: 002#2#2008-00074

PATIENT
  Age: 25 Year
  Sex: Female

DRUGS (2)
  1. NEUPRO [Suspect]
     Indication: CEREBRAL PALSY
     Dosage: MG/24H,1 IN 1 D,TRANSDERMAL
     Route: 062
     Dates: start: 20080130
  2. NEUPRO [Suspect]
     Indication: MOVEMENT DISORDER
     Dosage: MG/24H,1 IN 1 D,TRANSDERMAL
     Route: 062
     Dates: start: 20080130

REACTIONS (3)
  - DRUG INEFFECTIVE [None]
  - INTENTIONAL DRUG MISUSE [None]
  - PHARMACEUTICAL PRODUCT COMPLAINT [None]
